FAERS Safety Report 7344517-9 (Version None)
Quarter: 2011Q1

REPORT INFORMATION
  Report Type: 
  Country: None (occurrence: None)
  Receive Date: 20110308
  Receipt Date: 20110308
  Transmission Date: 20110831
  Serious: No
  Sender: FDA-Public Use
  Company Number: None

PATIENT
  Age: 84 Year
  Sex: Male
  Weight: 49.8957 kg

DRUGS (1)
  1. ENALAPRIL MALEATE [Suspect]
     Indication: RENAL FAILURE
     Dosage: ONE TABLET ONCE A DAY PO
     Route: 048
     Dates: start: 20101201, end: 20110208

REACTIONS (2)
  - COUGH [None]
  - RASH [None]
